FAERS Safety Report 23481948 (Version 1)
Quarter: 2024Q1

REPORT INFORMATION
  Report Type: Other
  Country: DE (occurrence: DE)
  Receive Date: 20240205
  Receipt Date: 20240205
  Transmission Date: 20240409
  Serious: Yes (Death, Hospitalization, Other)
  Sender: FDA-Public Use
  Company Number: DE-BAXTER-2023BAX025246

PATIENT
  Age: 73 Year
  Sex: Male
  Weight: 65 kg

DRUGS (27)
  1. BORTEZOMIB [Suspect]
     Active Substance: BORTEZOMIB
     Indication: Drug therapy
     Dosage: UNK, AS A PART OF FIRST CYCLE OF TREATEMNT
     Route: 058
     Dates: start: 20221117
  2. BORTEZOMIB [Suspect]
     Active Substance: BORTEZOMIB
     Indication: Plasma cell myeloma
     Dosage: 3 MG
     Route: 058
     Dates: start: 20230228, end: 20230228
  3. BORTEZOMIB [Suspect]
     Active Substance: BORTEZOMIB
     Dosage: 3 MG
     Route: 058
     Dates: start: 20230224, end: 20230224
  4. BORTEZOMIB [Suspect]
     Active Substance: BORTEZOMIB
     Route: 058
     Dates: start: 20221228
  5. BORTEZOMIB [Suspect]
     Active Substance: BORTEZOMIB
     Route: 058
     Dates: start: 20230204
  6. CYCLOPHOSPHAMIDE [Suspect]
     Active Substance: CYCLOPHOSPHAMIDE
     Indication: Salvage therapy
     Dosage: UNK
     Dates: end: 20221231
  7. CYCLOPHOSPHAMIDE [Suspect]
     Active Substance: CYCLOPHOSPHAMIDE
     Indication: Plasma cell myeloma
  8. ETOPOSIDE [Suspect]
     Active Substance: ETOPOSIDE
     Indication: Plasma cell myeloma
     Dosage: UNK
  9. DARATUMUMAB [Suspect]
     Active Substance: DARATUMUMAB
     Indication: Drug therapy
     Dosage: UNK, AS A PART OF FIRST CYCLE OF TREATEMNT
     Route: 042
     Dates: start: 20221117
  10. DARATUMUMAB [Suspect]
     Active Substance: DARATUMUMAB
     Dosage: UNK, AS A PART OF FIRST CYCLE OF TREATEMNT
     Route: 042
     Dates: start: 20230224, end: 20230224
  11. DARATUMUMAB [Suspect]
     Active Substance: DARATUMUMAB
     Dosage: UNK, AS A PART OF FIRST CYCLE OF TREATEMNT
     Route: 042
     Dates: start: 20230228, end: 20230228
  12. POMALIDOMIDE [Suspect]
     Active Substance: POMALIDOMIDE
     Indication: Product used for unknown indication
     Dosage: UNK, AS A PART OF FIRST CYCLE OF TREATEMNT
     Dates: start: 20221117
  13. THALIDOMIDE [Suspect]
     Active Substance: THALIDOMIDE
     Indication: Product used for unknown indication
     Dosage: UNK
  14. DOXORUBICIN [Suspect]
     Active Substance: DOXORUBICIN
     Indication: Salvage therapy
     Dosage: UNK, AS A PART OF FIRST CYCLE OF TREATEMNT
     Dates: start: 20221117
  15. DOXORUBICIN [Suspect]
     Active Substance: DOXORUBICIN
     Indication: Plasma cell myeloma
     Dosage: UNK, AS A PART OF FIRST CYCLE OF TREATEMNT
     Dates: start: 20221229, end: 20221231
  16. CARFILZOMIB [Suspect]
     Active Substance: CARFILZOMIB
     Indication: Plasma cell myeloma
     Dosage: UNK
  17. DEXAMETHASONE [Suspect]
     Active Substance: DEXAMETHASONE
     Indication: Product used for unknown indication
     Dosage: UNK, AS A PART OF FIRST CYCLE OF TREATEMNT
     Dates: start: 20221117
  18. DEXAMETHASONE [Suspect]
     Active Substance: DEXAMETHASONE
     Indication: Sepsis
     Dosage: UNK, AS A PART OF FIRST CYCLE OF TREATEMNT
     Dates: start: 20230320, end: 20230320
  19. MELPHALAN [Suspect]
     Active Substance: MELPHALAN
     Indication: Overdose
     Route: 042
     Dates: end: 20230311
  20. TECLISTAMAB [Suspect]
     Active Substance: TECLISTAMAB
     Indication: Product used for unknown indication
     Dosage: AFTER CYCLOPHOSPHAMIDE AND DOXORUBICIN ADMINISTRATION
  21. DARZALEX [Suspect]
     Active Substance: DARATUMUMAB
     Indication: Plasma cell myeloma
     Route: 041
  22. DARZALEX [Suspect]
     Active Substance: DARATUMUMAB
     Route: 041
     Dates: start: 20221212, end: 20221212
  23. TAZOBACTAM [Concomitant]
     Active Substance: TAZOBACTAM
     Indication: Sepsis
     Route: 042
     Dates: start: 20230320, end: 20230321
  24. PIPERACILLIN [Concomitant]
     Active Substance: PIPERACILLIN
     Indication: Sepsis
     Route: 042
     Dates: start: 20230320, end: 20230321
  25. MEROPENEM [Concomitant]
     Active Substance: MEROPENEM
     Indication: Sepsis
     Route: 041
     Dates: start: 20230321, end: 20230322
  26. MEROPENEM [Concomitant]
     Active Substance: MEROPENEM
     Indication: Bacterial infection
  27. ACYCLOVIR [Concomitant]
     Active Substance: ACYCLOVIR
     Indication: Sepsis
     Route: 042
     Dates: start: 20230320, end: 20230322

REACTIONS (15)
  - Multiple organ dysfunction syndrome [Fatal]
  - Sepsis [Fatal]
  - Aplasia [Fatal]
  - Aplasia [Recovered/Resolved]
  - Pyrexia [Recovered/Resolved]
  - General physical health deterioration [Unknown]
  - Device related sepsis [Unknown]
  - Pneumonia [Unknown]
  - Renal failure [Not Recovered/Not Resolved]
  - Pulmonary oedema [Recovered/Resolved]
  - Depressed level of consciousness [Unknown]
  - Disturbance in attention [Unknown]
  - Hypertension [Not Recovered/Not Resolved]
  - Tachycardia [Unknown]
  - Tachypnoea [Unknown]

NARRATIVE: CASE EVENT DATE: 20221218
